FAERS Safety Report 5398938-4 (Version None)
Quarter: 2007Q3

REPORT INFORMATION
  Report Type: 
  Country: None (occurrence: None)
  Receive Date: 20070724
  Receipt Date: 20070724
  Transmission Date: 20080115
  Serious: Yes (Hospitalization)
  Sender: FDA-Public Use
  Company Number: None

PATIENT
  Age: 43 Year
  Sex: Male

DRUGS (1)
  1. DAPSONE [Suspect]
     Indication: ANTIFUNGAL PROPHYLAXIS
     Dosage: 100MG DAILY PO
     Route: 048
     Dates: start: 20070606, end: 20070621

REACTIONS (4)
  - GASTROINTESTINAL DISORDER [None]
  - HAEMOLYTIC ANAEMIA [None]
  - INFECTION [None]
  - METHAEMOGLOBINAEMIA [None]
